FAERS Safety Report 17157316 (Version 1)
Quarter: 2019Q4

REPORT INFORMATION
  Report Type: Spontaneous
  Country: NL (occurrence: NL)
  Receive Date: 20191216
  Receipt Date: 20191216
  Transmission Date: 20200122
  Serious: Yes (Hospitalization)
  Sender: FDA-Public Use
  Company Number: NL-MYLANLABS-2019M1123097

PATIENT
  Age: 59 Year
  Sex: Male

DRUGS (5)
  1. PREDNISON [Concomitant]
     Active Substance: PREDNISONE
     Dosage: 1DD0,5 (18-09-2018 GESTART MET 15 MG PREDISOLON, GEHEEL AFGEBOUWD
  2. TAMSULOSINE                        /01280301/ [Concomitant]
     Active Substance: TAMSULOSIN
     Dosage: 1D1
     Dates: start: 20150325
  3. TRIAMCINOLON                       /00031902/ [Concomitant]
     Dosage: 1DA
  4. CELECOXIB. [Suspect]
     Active Substance: CELECOXIB
     Indication: PSORIATIC ARTHROPATHY
     Dosage: 2 X PER DAG 1 TABLET
     Route: 048
     Dates: start: 20190708, end: 20190716
  5. LEFLUNOMIDE. [Concomitant]
     Active Substance: LEFLUNOMIDE
     Dosage: 1D1
     Dates: start: 20190708

REACTIONS (5)
  - Pyrexia [Unknown]
  - Malaise [Unknown]
  - Vomiting [Unknown]
  - Rash [Recovering/Resolving]
  - Erythema multiforme [Unknown]

NARRATIVE: CASE EVENT DATE: 20190716
